FAERS Safety Report 16779666 (Version 2)
Quarter: 2019Q4

REPORT INFORMATION
  Report Type: Spontaneous
  Country: DE (occurrence: DE)
  Receive Date: 20190906
  Receipt Date: 20191022
  Transmission Date: 20200122
  Serious: Yes (Hospitalization, Other)
  Sender: FDA-Public Use
  Company Number: DE-009507513-1908DEU010547

PATIENT
  Age: 32 Year
  Sex: Female

DRUGS (7)
  1. PUREGON PEN [Suspect]
     Active Substance: FOLLITROPIN
     Indication: CONTROLLED OVARIAN STIMULATION
     Dosage: 150 IU INTERNATIONAL UNIT(S), QD
     Route: 058
     Dates: start: 20190218, end: 20190227
  2. ORGALUTRAN [Suspect]
     Active Substance: GANIRELIX ACETATE
     Indication: ASSISTED REPRODUCTIVE TECHNOLOGY
     Dosage: 0.25 MG, DAILY
     Route: 058
     Dates: start: 20190223, end: 20190227
  3. PUREGON PEN [Suspect]
     Active Substance: FOLLITROPIN
     Indication: CONTROLLED OVARIAN STIMULATION
     Dosage: 150 IU INTERNATIONAL UNIT(S), QD
     Route: 058
     Dates: start: 20190218, end: 20190227
  4. ZITHROMAX [Suspect]
     Active Substance: AZITHROMYCIN DIHYDRATE
     Indication: ASSISTED REPRODUCTIVE TECHNOLOGY
     Dosage: 1000 MG AND 500 MG FOR TWO DAYS
     Route: 048
     Dates: start: 20190216, end: 20190217
  5. ZITHROMAX [Suspect]
     Active Substance: AZITHROMYCIN DIHYDRATE
     Indication: ANTIBIOTIC THERAPY
  6. OVITRELLE [Suspect]
     Active Substance: CHORIOGONADOTROPIN ALFA
     Indication: OVULATION INDUCTION
     Dosage: 250 IU, ONCE/SINGLE
     Route: 058
     Dates: start: 20190227, end: 20190227
  7. PROGESTERONE. [Suspect]
     Active Substance: PROGESTERONE
     Indication: ASSISTED REPRODUCTIVE TECHNOLOGY
     Dosage: 100 MG, 3 TIMES DAILY
     Route: 067
     Dates: start: 20190303, end: 20190316

REACTIONS (1)
  - Ovarian hyperstimulation syndrome [Recovered/Resolved]

NARRATIVE: CASE EVENT DATE: 20190314
